FAERS Safety Report 16531506 (Version 1)
Quarter: 2019Q3

REPORT INFORMATION
  Report Type: Report from Study
  Country: KR (occurrence: KR)
  Receive Date: 20190705
  Receipt Date: 20190705
  Transmission Date: 20191004
  Serious: Yes (Other)
  Sender: FDA-Public Use
  Company Number: KR-ROCHE-2349729

PATIENT
  Age: 55 Year
  Sex: Female

DRUGS (9)
  1. MADIPINE [Concomitant]
     Route: 065
     Dates: start: 20181013
  2. GASMOTIN [Concomitant]
     Active Substance: MOSAPRIDE CITRATE
  3. ERLOTINIB [Suspect]
     Active Substance: ERLOTINIB
     Indication: NON-SMALL CELL LUNG CANCER
     Route: 048
     Dates: start: 20170927
  4. VALSAONE [Concomitant]
     Route: 065
     Dates: start: 20180731
  5. FLOMOX [CEFCAPENE PIVOXIL HYDROCHLORIDE] [Concomitant]
     Active Substance: CEFCAPENE PIVOXIL HYDROCHLORIDE
     Route: 065
     Dates: start: 20190102
  6. ERLOTINIB [Suspect]
     Active Substance: ERLOTINIB
     Route: 048
     Dates: start: 20181009, end: 20190703
  7. BEVACIZUMAB. [Suspect]
     Active Substance: BEVACIZUMAB
     Indication: NON-SMALL CELL LUNG CANCER
     Route: 065
     Dates: start: 20170927, end: 20180918
  8. SYNTHROID [Concomitant]
     Active Substance: LEVOTHYROXINE SODIUM
     Route: 065
     Dates: start: 20180820
  9. METHYLON [METHYLPREDNISOLONE] [Concomitant]
     Route: 065

REACTIONS (2)
  - Alanine aminotransferase increased [Not Recovered/Not Resolved]
  - Aspartate aminotransferase increased [Not Recovered/Not Resolved]

NARRATIVE: CASE EVENT DATE: 20190703
